FAERS Safety Report 7980302-2 (Version None)
Quarter: 2011Q4

REPORT INFORMATION
  Report Type: 
  Country: None (occurrence: None)
  Receive Date: 20111214
  Receipt Date: 20111128
  Transmission Date: 20120403
  Serious: Yes (Congenital Anomaly, Other)
  Sender: FDA-Public Use
  Company Number: PHHY2011FR108225

PATIENT
  Sex: Male

DRUGS (1)
  1. LEVONORGESTREL [Suspect]
     Route: 064

REACTIONS (3)
  - PREMATURE BABY [None]
  - PYELOCALIECTASIS [None]
  - FOETAL EXPOSURE DURING PREGNANCY [None]
